FAERS Safety Report 17639134 (Version 1)
Quarter: 2020Q2

REPORT INFORMATION
  Report Type: Spontaneous
  Country: DE (occurrence: DE)
  Receive Date: 20200407
  Receipt Date: 20200407
  Transmission Date: 20200713
  Serious: Yes (Death, Other)
  Sender: FDA-Public Use
  Company Number: DE-ASTELLAS-2020US011526

PATIENT
  Sex: Male
  Weight: 58 kg

DRUGS (4)
  1. TACROLIMUS. [Suspect]
     Active Substance: TACROLIMUS
     Route: 042
  2. MYCOPHENOLATE MOFETIL. [Suspect]
     Active Substance: MYCOPHENOLATE MOFETIL
     Indication: HEART TRANSPLANT
     Route: 048
  3. MYCOPHENOLATE MOFETIL. [Suspect]
     Active Substance: MYCOPHENOLATE MOFETIL
     Route: 048
  4. TACROLIMUS. [Suspect]
     Active Substance: TACROLIMUS
     Indication: HEART TRANSPLANT
     Route: 048

REACTIONS (8)
  - Septic shock [Fatal]
  - Renal impairment [Unknown]
  - Epstein-Barr virus associated lymphoproliferative disorder [Unknown]
  - Device related infection [Unknown]
  - Acute respiratory distress syndrome [Unknown]
  - Sepsis [Unknown]
  - Candida infection [Unknown]
  - Multiple organ dysfunction syndrome [Fatal]
